FAERS Safety Report 17602182 (Version 4)
Quarter: 2020Q2

REPORT INFORMATION
  Report Type: Spontaneous
  Country: US (occurrence: US)
  Receive Date: 20200331
  Receipt Date: 20200428
  Transmission Date: 20200713
  Serious: No
  Sender: FDA-Public Use
  Company Number: US-AMGEN INC.-USASP2020051217

PATIENT
  Age: 69 Year
  Sex: Female
  Weight: 88.89 kg

DRUGS (1)
  1. AIMOVIG [Suspect]
     Active Substance: ERENUMAB-AOOE
     Indication: FACIAL PARALYSIS
     Dosage: 140 MILLIGRAM
     Route: 065
     Dates: start: 20200109

REACTIONS (4)
  - Incorrect disposal of product [Unknown]
  - Off label use [Unknown]
  - Device use error [Unknown]
  - Accidental exposure to product [Unknown]

NARRATIVE: CASE EVENT DATE: 2020
